FAERS Safety Report 7436088-3 (Version None)
Quarter: 2011Q2

REPORT INFORMATION
  Report Type: 
  Country: None (occurrence: None)
  Receive Date: 20110425
  Receipt Date: 20110419
  Transmission Date: 20111010
  Serious: Yes (Congenital Anomaly, Other)
  Sender: FDA-Public Use
  Company Number: US-ABBOTT-11P-163-0720405-00

PATIENT
  Sex: Female

DRUGS (1)
  1. DEPAKOTE [Suspect]
     Indication: DRUG EXPOSURE DURING PREGNANCY
     Route: 064

REACTIONS (12)
  - EMOTIONAL DISTRESS [None]
  - DRUG EXPOSURE DURING PREGNANCY [None]
  - DEFORMITY [None]
  - MULTIPLE INJURIES [None]
  - CONGENITAL ANOMALY [None]
  - PHYSICAL DISABILITY [None]
  - IMPAIRED WORK ABILITY [None]
  - SPINA BIFIDA [None]
  - MULTIPLE CONGENITAL ABNORMALITIES [None]
  - NEURAL TUBE DEFECT [None]
  - PAIN [None]
  - QUALITY OF LIFE DECREASED [None]
